FAERS Safety Report 12258474 (Version 1)
Quarter: 2016Q2

REPORT INFORMATION
  Report Type: Spontaneous
  Country: US (occurrence: US)
  Receive Date: 20160412
  Receipt Date: 20160412
  Transmission Date: 20160815
  Serious: No
  Sender: FDA-Public Use
  Company Number: US-SA-2015SA047464

PATIENT
  Age: 63 Year
  Sex: Female

DRUGS (1)
  1. ALLEGRA [Suspect]
     Active Substance: FEXOFENADINE HYDROCHLORIDE
     Indication: MULTIPLE ALLERGIES
     Route: 048
     Dates: start: 20150221, end: 20150408

REACTIONS (9)
  - Muscle spasms [Unknown]
  - Dizziness [Unknown]
  - Pain in extremity [Unknown]
  - Chest pain [Unknown]
  - Palpitations [Unknown]
  - Feeling abnormal [Unknown]
  - Anxiety [Unknown]
  - Nausea [Unknown]
  - Pruritus [Unknown]

NARRATIVE: CASE EVENT DATE: 201502
